FAERS Safety Report 16669520 (Version 3)
Quarter: 2020Q1

REPORT INFORMATION
  Report Type: Spontaneous
  Country: DE (occurrence: DE)
  Receive Date: 20190805
  Receipt Date: 20200130
  Transmission Date: 20200409
  Serious: Yes (Death, Life-Threatening, Hospitalization, Other)
  Sender: FDA-Public Use
  Company Number: DE-MYLANLABS-2019M1072619

PATIENT
  Age: 79 Year
  Sex: Female
  Weight: 71 kg

DRUGS (52)
  1. VALSARTAN. [Suspect]
     Active Substance: VALSARTAN
     Indication: HYPERTENSION
     Dosage: 320 MILLIGRAM, QD (160 MG, BID)
     Route: 065
     Dates: start: 2005
  2. VALSARTAN. [Suspect]
     Active Substance: VALSARTAN
     Indication: HYPERTENSION
     Dosage: UNK
     Route: 065
     Dates: start: 2017, end: 2018
  3. L-THYROX HEXAL [Suspect]
     Active Substance: LEVOTHYROXINE SODIUM
     Indication: PRODUCT USED FOR UNKNOWN INDICATION
     Dosage: UNK
     Route: 065
     Dates: start: 2014
  4. AMLODIPIN 1A PHARMA GMBH [Suspect]
     Active Substance: AMLODIPINE BESYLATE
     Indication: HYPERTENSION
     Dosage: 5 MILLIGRAM (5 MG, UNK)
     Route: 065
     Dates: start: 2013, end: 2018
  5. PARACETAMOL [Concomitant]
     Active Substance: ACETAMINOPHEN
     Indication: PRODUCT USED FOR UNKNOWN INDICATION
     Dosage: 1000 MILLIGRAM
     Route: 065
     Dates: start: 201903
  6. IBUPROFEN AL [Concomitant]
     Active Substance: IBUPROFEN
     Indication: PRODUCT USED FOR UNKNOWN INDICATION
     Dosage: 2 DF, QD (MORNING AND EVENING)
     Route: 065
     Dates: start: 2011
  7. PANTOPRAZOL TAD [Concomitant]
     Active Substance: PANTOPRAZOLE SODIUM
     Indication: PRODUCT USED FOR UNKNOWN INDICATION
     Dosage: 1 DF, QD (MORNING)
     Route: 065
     Dates: start: 2015
  8. MIDAZOLAM HYDROCHLORIDE. [Concomitant]
     Active Substance: MIDAZOLAM HYDROCHLORIDE
     Indication: PRODUCT USED FOR UNKNOWN INDICATION
     Dosage: 5 MG/ML, UNKNOWN
     Route: 065
     Dates: start: 201903
  9. VALSARTAN. [Suspect]
     Active Substance: VALSARTAN
     Dosage: 160 MILLIGRAM (160 MG, UNK)
     Route: 065
     Dates: start: 201302
  10. VALSARTAN. [Suspect]
     Active Substance: VALSARTAN
     Indication: HYPERTENSION
     Dosage: 160 MILLIGRAM, QD (160 MG, QD)
     Route: 048
     Dates: start: 201312, end: 2017
  11. BISOPROLOL PLUS [Suspect]
     Active Substance: BISOPROLOL FUMARATE\HYDROCHLOROTHIAZIDE
     Indication: PRODUCT USED FOR UNKNOWN INDICATION
     Dosage: UNK
     Route: 065
     Dates: start: 2014, end: 2018
  12. AMLODIPIN (BESILAT) DEXCEL [Concomitant]
     Active Substance: AMLODIPINE BESYLATE
     Indication: PRODUCT USED FOR UNKNOWN INDICATION
     Dosage: UNK
     Route: 065
     Dates: start: 2013, end: 2017
  13. MOVICOL [Concomitant]
     Active Substance: POLYETHYLENE GLYCOL 3350\POTASSIUM CHLORIDE\SODIUM BICARBONATE\SODIUM CHLORIDE
     Indication: PRODUCT USED FOR UNKNOWN INDICATION
     Dosage: 2 DOSAGE FORM, QD (UNK UNK, BID)
     Route: 065
  14. VALSARTAN. [Suspect]
     Active Substance: VALSARTAN
     Dosage: 160 MG, BID
     Route: 065
     Dates: start: 2012
  15. VALSARTAN. [Suspect]
     Active Substance: VALSARTAN
     Dosage: UNK (80 OT, UNK)
     Route: 065
     Dates: start: 2013, end: 201302
  16. VALSARTAN. [Suspect]
     Active Substance: VALSARTAN
     Dosage: UNK (80 OT, UNK)
     Route: 065
     Dates: start: 201302
  17. PREDNISOLONE. [Suspect]
     Active Substance: PREDNISOLONE
     Indication: PRODUCT USED FOR UNKNOWN INDICATION
     Dosage: UNK
     Route: 065
  18. BISOPROLOL COMP [Concomitant]
     Dosage: 0.5 DF, QD (MORNING)
     Route: 065
     Dates: start: 201302, end: 2017
  19. INFECTOTRIMET [Concomitant]
     Indication: PRODUCT USED FOR UNKNOWN INDICATION
     Dosage: UNK
     Route: 065
     Dates: start: 2015
  20. PANTOZOL [Concomitant]
     Active Substance: PANTOPRAZOLE SODIUM
     Indication: PRODUCT USED FOR UNKNOWN INDICATION
     Dosage: UNK
     Route: 065
  21. FUROSEMID                          /00032602/ [Concomitant]
     Active Substance: FUROSEMIDE SODIUM
     Dosage: 40 MG, BID
     Route: 065
     Dates: start: 201903
  22. VALSARTAN. [Suspect]
     Active Substance: VALSARTAN
     Indication: HYPERTENSION
     Dosage: UNK (80 OT, UNK)
     Route: 065
     Dates: start: 2010, end: 2013
  23. VALSARTAN. [Suspect]
     Active Substance: VALSARTAN
     Dosage: 160 MG, QD
     Route: 048
     Dates: start: 201402, end: 2017
  24. BISOPROLOL COMP [Concomitant]
     Dosage: UNK
     Route: 065
     Dates: start: 2014, end: 2017
  25. EYLEA [Concomitant]
     Active Substance: AFLIBERCEPT
     Indication: PRODUCT USED FOR UNKNOWN INDICATION
     Dosage: UNK
     Route: 065
     Dates: start: 2014
  26. MACROGOL ABZ BALANCE [Concomitant]
     Indication: PRODUCT USED FOR UNKNOWN INDICATION
     Dosage: UNK
     Route: 065
     Dates: start: 201902
  27. HYDROMORPHONE                      /00080902/ [Concomitant]
     Active Substance: HYDROMORPHONE HYDROCHLORIDE
     Indication: PRODUCT USED FOR UNKNOWN INDICATION
     Dosage: 2 MG
     Route: 065
     Dates: start: 201902
  28. TAVOR                              /00848101/ [Concomitant]
     Active Substance: SIMVASTATIN
     Indication: PRODUCT USED FOR UNKNOWN INDICATION
     Dosage: 1.0 OT
     Route: 065
     Dates: start: 201902
  29. EUTHYROX [Concomitant]
     Active Substance: LEVOTHYROXINE SODIUM
     Indication: PRODUCT USED FOR UNKNOWN INDICATION
     Dosage: 125 OT, QD (MORNING)
     Route: 065
  30. FUROSEMID                          /00032602/ [Concomitant]
     Active Substance: FUROSEMIDE SODIUM
     Indication: PRODUCT USED FOR UNKNOWN INDICATION
     Dosage: UNK
     Route: 065
  31. HALOPERIDOL NEURAXPHARM [Concomitant]
     Indication: PRODUCT USED FOR UNKNOWN INDICATION
     Dosage: 30 ML
     Route: 065
     Dates: start: 201902
  32. DIGIMERCK [Concomitant]
     Active Substance: DIGITOXIN
     Indication: PRODUCT USED FOR UNKNOWN INDICATION
     Dosage: 0.07 OT
     Route: 065
     Dates: start: 201901
  33. VALSARTAN DURA [Suspect]
     Active Substance: VALSARTAN
     Indication: HYPERTENSION
     Dosage: UNK
     Route: 065
     Dates: start: 2017, end: 2018
  34. VALSARTAN. [Suspect]
     Active Substance: VALSARTAN
     Indication: HYPERTENSION
     Dosage: UNK
     Route: 065
     Dates: start: 2013
  35. VALSARTAN. [Suspect]
     Active Substance: VALSARTAN
     Dosage: 160 MILLIGRAM (160 MG, UNK)
     Route: 065
     Dates: start: 2013, end: 2013
  36. AMLODIPIN HEXAL                    /00972401/ [Suspect]
     Active Substance: AMLODIPINE BESYLATE
     Indication: HYPERTENSION
     Dosage: UNK
     Route: 065
     Dates: start: 2016, end: 2017
  37. L-THYROXIN ARISTO [Concomitant]
     Indication: PRODUCT USED FOR UNKNOWN INDICATION
     Dosage: UNK
     Route: 065
     Dates: start: 2013
  38. MOMETASONFUROAAT GLENMARK [Concomitant]
     Indication: PRODUCT USED FOR UNKNOWN INDICATION
     Dosage: UNK
     Route: 065
     Dates: start: 2015
  39. BISOPROLOL COMP [Concomitant]
     Indication: BLOOD PRESSURE INCREASED
     Dosage: 1 DF, QD
     Route: 065
     Dates: start: 20130227, end: 20130414
  40. MOMETASON GLENMARK [Concomitant]
     Indication: PRODUCT USED FOR UNKNOWN INDICATION
     Dosage: UNK
     Route: 065
     Dates: start: 2018
  41. VALSARTAN. [Suspect]
     Active Substance: VALSARTAN
     Dosage: 160 MILLIGRAM
     Route: 065
     Dates: start: 2014
  42. L-THYROXIN                         /00068002/ [Concomitant]
     Active Substance: LEVOTHYROXINE SODIUM
     Indication: PRODUCT USED FOR UNKNOWN INDICATION
     Dosage: UNK
     Route: 065
     Dates: start: 2011, end: 2018
  43. NOVAMINSULFON [Concomitant]
     Active Substance: METAMIZOLE
     Indication: PRODUCT USED FOR UNKNOWN INDICATION
     Dosage: UNK
     Route: 065
     Dates: start: 2011
  44. ECURAL [Concomitant]
     Active Substance: MOMETASONE
     Indication: PRODUCT USED FOR UNKNOWN INDICATION
     Dosage: UNK
     Route: 065
  45. FENTANYL CT [Concomitant]
     Indication: PRODUCT USED FOR UNKNOWN INDICATION
     Dosage: 12 UG/HR, UNKNOWN
     Route: 065
     Dates: start: 201903
  46. BISOPROLOL COMP [Concomitant]
     Dosage: 0.5 DF
     Route: 065
     Dates: start: 20130415, end: 201811
  47. ADVANTAN [Concomitant]
     Active Substance: METHYLPREDNISOLONE ACEPONATE
     Indication: PRODUCT USED FOR UNKNOWN INDICATION
     Dosage: UNK
     Route: 065
     Dates: start: 2018
  48. DEXAGENT OPHTAL                    /01106201/ [Concomitant]
     Active Substance: DEXAMETHASONE\GENTAMICIN SULFATE
     Indication: PRODUCT USED FOR UNKNOWN INDICATION
     Dosage: UNK
     Route: 065
     Dates: start: 2014
  49. PENICILLIN V AL [Concomitant]
     Indication: PRODUCT USED FOR UNKNOWN INDICATION
     Dosage: UNK
     Route: 065
     Dates: start: 2015
  50. FERRO-SANOL DUODENAL [Concomitant]
     Active Substance: FERROUS GLYCINE SULFATE
     Indication: PRODUCT USED FOR UNKNOWN INDICATION
     Dosage: 1 DF, QD (MORNING)
     Route: 065
     Dates: start: 2011
  51. CLEXANE [Concomitant]
     Active Substance: ENOXAPARIN SODIUM
     Indication: PRODUCT USED FOR UNKNOWN INDICATION
     Dosage: UNK
     Route: 065
     Dates: start: 2011
  52. PANTOPRAZOLE [Concomitant]
     Active Substance: PANTOPRAZOLE
     Indication: PRODUCT USED FOR UNKNOWN INDICATION
     Dosage: 40 MG
     Route: 065
     Dates: start: 201901

REACTIONS (76)
  - Urinary retention [Unknown]
  - General physical health deterioration [Unknown]
  - Metastases to lung [Not Recovered/Not Resolved]
  - Functional gastrointestinal disorder [Unknown]
  - Basal cell carcinoma [Unknown]
  - Left ventricular failure [Unknown]
  - Defaecation disorder [Unknown]
  - Colitis [Unknown]
  - Ventricular hypertrophy [Unknown]
  - Cognitive disorder [Unknown]
  - Brain oedema [Unknown]
  - Chronic kidney disease [Unknown]
  - Dyspnoea exertional [Unknown]
  - Right ventricular failure [Unknown]
  - Tinnitus [Unknown]
  - Urinary tract infection [Unknown]
  - Large intestine polyp [Unknown]
  - Insomnia [Unknown]
  - Pruritus [Unknown]
  - Blood glucose increased [Unknown]
  - Metastases to central nervous system [Unknown]
  - Inflammatory marker increased [Unknown]
  - Steroid diabetes [Unknown]
  - Blood pressure increased [Unknown]
  - Adenoma benign [Unknown]
  - Haemorrhoids [Unknown]
  - Rash [Unknown]
  - Drug intolerance [Unknown]
  - Personality change [Unknown]
  - Osteoarthritis [Unknown]
  - Erysipelas [Unknown]
  - Erythema [Unknown]
  - Bradycardia [Unknown]
  - Oedema peripheral [Recovering/Resolving]
  - Restlessness [Unknown]
  - Productive cough [Unknown]
  - Dizziness [Unknown]
  - Vomiting [Unknown]
  - Visual impairment [Unknown]
  - Swelling [Unknown]
  - Arthralgia [Recovering/Resolving]
  - Ventricular extrasystoles [Unknown]
  - Pustule [Unknown]
  - Ischaemia [Unknown]
  - Cerumen impaction [Unknown]
  - Meniscal degeneration [Unknown]
  - Peripheral swelling [Unknown]
  - Weight increased [Recovering/Resolving]
  - Fibroma [Unknown]
  - Fall [Unknown]
  - Dermatosis [Unknown]
  - Dysuria [Unknown]
  - Colon adenoma [Unknown]
  - Nocturia [Unknown]
  - Gastroenteritis [Unknown]
  - Fatigue [Unknown]
  - Abdominal pain [Unknown]
  - Brain neoplasm [Unknown]
  - Clear cell renal cell carcinoma [Not Recovered/Not Resolved]
  - Asthenia [Unknown]
  - Disturbance in attention [Unknown]
  - Pain in extremity [Unknown]
  - Varicose vein [Unknown]
  - Dyspnoea [Unknown]
  - Tendon rupture [Unknown]
  - Tachycardia [Unknown]
  - Diarrhoea [Unknown]
  - Drug ineffective [Unknown]
  - Death [Fatal]
  - Gait disturbance [Unknown]
  - Cataract [Unknown]
  - Atrial fibrillation [Unknown]
  - Aphthous ulcer [Unknown]
  - Anaemia [Unknown]
  - Melanocytic naevus [Unknown]
  - Joint swelling [Unknown]

NARRATIVE: CASE EVENT DATE: 2008
